FAERS Safety Report 25958189 (Version 1)
Quarter: 2025Q4

REPORT INFORMATION
  Report Type: Report from Study
  Country: BR (occurrence: BR)
  Receive Date: 20251024
  Receipt Date: 20251024
  Transmission Date: 20260118
  Serious: Yes (Other)
  Sender: ELI LILLY AND COMPANY
  Company Number: BR-Merck Healthcare KGaA-2025052596

PATIENT
  Age: 73 Year
  Sex: Male

DRUGS (4)
  1. CETUXIMAB [Suspect]
     Active Substance: CETUXIMAB
     Indication: Colon cancer
     Dosage: 500 MG, OTHER (ONCE IN 15 DAYS)
     Route: 042
     Dates: start: 20250805
  2. CETUXIMAB [Suspect]
     Active Substance: CETUXIMAB
     Dosage: 975 MG, OTHER (ONCE IN 15 DAYS)
     Route: 042
     Dates: start: 20250805
  3. OXALIPLATIN [Suspect]
     Active Substance: OXALIPLATIN
     Indication: Colon cancer
     Dosage: UNK UNK, UNKNOWN
     Route: 065
  4. FLUOROURACIL [Suspect]
     Active Substance: FLUOROURACIL
     Indication: Colon cancer
     Dosage: UNK UNK, UNKNOWN
     Route: 065

REACTIONS (4)
  - Genital herpes zoster [Recovering/Resolving]
  - Immunodeficiency [Recovering/Resolving]
  - Weight decreased [Recovering/Resolving]
  - Off label use [Unknown]
